FAERS Safety Report 8122390-9 (Version None)
Quarter: 2012Q1

REPORT INFORMATION
  Report Type: 
  Country: None (occurrence: None)
  Receive Date: 20120208
  Receipt Date: 20120206
  Transmission Date: 20120608
  Serious: Yes (Hospitalization, Congenital Anomaly)
  Sender: FDA-Public Use
  Company Number: US-GLAXOSMITHKLINE-A0963947A

PATIENT
  Sex: Female
  Weight: 1.9 kg

DRUGS (2)
  1. PAXIL [Suspect]
     Indication: DEPRESSION
     Dosage: 20MG PER DAY
     Route: 064
     Dates: start: 20030303
  2. MULTI-VITAMINS [Concomitant]

REACTIONS (12)
  - POSTURE ABNORMAL [None]
  - SYNDACTYLY [None]
  - SEPSIS NEONATAL [None]
  - OEDEMA PERIPHERAL [None]
  - PYREXIA [None]
  - AMNIOTIC BAND SYNDROME [None]
  - FOETAL EXPOSURE DURING PREGNANCY [None]
  - MATERNAL DRUGS AFFECTING FOETUS [None]
  - MICRODACTYLY [None]
  - VERTICAL TALUS [None]
  - FINGER AMPUTATION [None]
  - PREMATURE BABY [None]
